FAERS Safety Report 8827441 (Version 1)
Quarter: 2012Q4

REPORT INFORMATION
  Report Type: 
  Country: BR (occurrence: BR)
  Receive Date: 20121008
  Receipt Date: 20121008
  Transmission Date: 20130627
  Serious: Yes (Other)
  Sender: FDA-Public Use
  Company Number: BR-JNJFOC-20120913269

PATIENT
  Age: 43 Year
  Sex: Female

DRUGS (2)
  1. REMICADE [Suspect]
     Indication: PSORIASIS
     Route: 042
     Dates: start: 20120806
  2. REMICADE [Suspect]
     Indication: PSORIASIS
     Route: 042
     Dates: start: 20120820

REACTIONS (8)
  - Drug eruption [Unknown]
  - Eczema nummular [Unknown]
  - Infusion related reaction [Unknown]
  - Rash papular [Not Recovered/Not Resolved]
  - Hypotension [Unknown]
  - Malaise [Unknown]
  - Nausea [Unknown]
  - Neck pain [Unknown]
